FAERS Safety Report 19767512 (Version 3)
Quarter: 2021Q4

REPORT INFORMATION
  Report Type: Report from Study
  Country: ES (occurrence: ES)
  Receive Date: 20210831
  Receipt Date: 20211020
  Transmission Date: 20220303
  Serious: Yes (Other)
  Sender: FDA-Public Use
  Company Number: ES-GLAXOSMITHKLINE-ES2021GSK181308

PATIENT
  Age: 76 Year
  Sex: Male

DRUGS (4)
  1. BELANTAMAB MAFODOTIN [Suspect]
     Active Substance: BELANTAMAB MAFODOTIN
     Indication: Plasma cell myeloma
     Dosage: 100 MG/VIALS/2.5 MG/KG EVERY THREE WEEKS (LYOPHILIZED POWDER)
     Route: 042
     Dates: start: 20210607
  2. BELANTAMAB MAFODOTIN [Suspect]
     Active Substance: BELANTAMAB MAFODOTIN
     Dosage: 100 MG/VIALS/2.5 MG/KG EVERY THREE WEEKS (LYOPHILIZED POWDER)
     Route: 042
     Dates: start: 20210627
  3. BENDAMUSTINE [Concomitant]
     Active Substance: BENDAMUSTINE
     Indication: Plasma cell myeloma
  4. PREDNISONE [Concomitant]
     Active Substance: PREDNISONE
     Indication: Plasma cell myeloma

REACTIONS (3)
  - Platelet count decreased [Recovered/Resolved]
  - Plasma cell myeloma [Unknown]
  - Visual acuity reduced [Unknown]

NARRATIVE: CASE EVENT DATE: 20210816
